FAERS Safety Report 5120910-X (Version None)
Quarter: 2006Q4

REPORT INFORMATION
  Report Type: 
  Country: None (occurrence: None)
  Receive Date: 20061005
  Receipt Date: 20060925
  Transmission Date: 20070319
  Serious: Yes (Death, Other)
  Sender: FDA-Public Use
  Company Number: BR-JNJFOC-20060906105

PATIENT
  Age: 21 Year
  Sex: Female

DRUGS (1)
  1. REMICADE [Suspect]
     Indication: SPONDYLITIS
     Route: 042

REACTIONS (3)
  - DEATH [None]
  - HEPATITIS [None]
  - PNEUMONIA [None]
